FAERS Safety Report 10098022 (Version 2)
Quarter: 2014Q2

REPORT INFORMATION
  Report Type: Spontaneous
  Country: US (occurrence: None)
  Receive Date: 20140421
  Receipt Date: 20140507
  Transmission Date: 20141212
  Serious: Yes (Death)
  Sender: FDA-Public Use
  Company Number: 2014NUEUSA00314

PATIENT
  Age: 74 Year
  Sex: Female

DRUGS (8)
  1. NUEDEXTA (DEXTROMETHORPHAN HYDROBROMIDE 20 MG, QUINIDINE SULFATE 10 MG) CAPSULE, 20/10MG [Suspect]
     Indication: AFFECT LABILITY
     Dosage: 1 CAP
     Dates: start: 20130729, end: 20140115
  2. BENICAR (OLMESARTAN MEDOXOMIL) [Concomitant]
  3. LOPRESSOR (METOPROLOL TARTRATE) [Concomitant]
  4. CLEOCIN (CLINDAMYCIN HYDROCHLORIDE) [Concomitant]
  5. SIMVASTATIN (SIMVASTATIN) [Concomitant]
  6. ASPIRIN (ACETYLSALICYLIC ACID) [Concomitant]
  7. ARICEPT (DONEPEZIL HYDROCHLORIDE) [Concomitant]
  8. DITROPAN XI (OXYBUTYNIN HYDROCHLORIDE) [Concomitant]

REACTIONS (27)
  - Cardiac arrest [None]
  - Fall [None]
  - Hypopnoea [None]
  - Loss of consciousness [None]
  - Ventricular fibrillation [None]
  - Pulse absent [None]
  - Atrioventricular block complete [None]
  - Rhythm idioventricular [None]
  - Blood pressure immeasurable [None]
  - Heart rate decreased [None]
  - Sinus tachycardia [None]
  - No therapeutic response [None]
  - Haemoglobin decreased [None]
  - Haematocrit decreased [None]
  - White blood cell count decreased [None]
  - Platelet count decreased [None]
  - Sinus bradycardia [None]
  - Atrioventricular block first degree [None]
  - Bundle branch block right [None]
  - QRS axis abnormal [None]
  - Coronary artery stenosis [None]
  - Ejection fraction decreased [None]
  - Hypokinesia [None]
  - Disease progression [None]
  - Coronary artery occlusion [None]
  - Coronary artery stenosis [None]
  - Coronary artery stenosis [None]
